FAERS Safety Report 9453749 (Version 1)
Quarter: 2013Q3

REPORT INFORMATION
  Report Type: Spontaneous
  Country: US (occurrence: US)
  Receive Date: 20130812
  Receipt Date: 20130812
  Transmission Date: 20140515
  Serious: No
  Sender: FDA-Public Use
  Company Number: US-THROMBOGENICS INC-JET-2013-141

PATIENT
  Sex: 0

DRUGS (1)
  1. JETREA [Suspect]
     Indication: VITREOUS ADHESIONS
     Dosage: 0.125 MG, ONE TIME DOSE
     Route: 031
     Dates: start: 20130426, end: 20130426

REACTIONS (7)
  - Photopsia [Recovered/Resolved]
  - Vitreous floaters [Recovered/Resolved]
  - Eye pain [Recovered/Resolved]
  - Miosis [Recovered/Resolved]
  - Discomfort [Recovered/Resolved]
  - Ciliary muscle spasm [Recovered/Resolved]
  - Visual acuity reduced [Recovered/Resolved]
